FAERS Safety Report 8235879-9 (Version None)
Quarter: 2012Q1

REPORT INFORMATION
  Report Type: 
  Country: None (occurrence: None)
  Receive Date: 20120326
  Receipt Date: 20120322
  Transmission Date: 20120608
  Serious: Yes (Other)
  Sender: FDA-Public Use
  Company Number: US-PFIZER INC-2012075777

PATIENT
  Sex: Female

DRUGS (2)
  1. BENADRYL [Suspect]
     Dosage: UNK
     Dates: start: 20120301
  2. CHANTIX [Suspect]
     Dosage: UNK
     Dates: start: 20120301

REACTIONS (4)
  - CHEST PAIN [None]
  - RASH [None]
  - DRUG HYPERSENSITIVITY [None]
  - URTICARIA [None]
